FAERS Safety Report 7234789-3 (Version None)
Quarter: 2011Q1

REPORT INFORMATION
  Report Type: 
  Country: None (occurrence: None)
  Receive Date: 20110114
  Receipt Date: 20110114
  Transmission Date: 20110831
  Serious: Yes (Hospitalization)
  Sender: FDA-Public Use
  Company Number: None

PATIENT
  Sex: Female
  Weight: 66.2252 kg

DRUGS (3)
  1. PAZOPANIB 200MG TABS GLAXO SMITH KLINE [Suspect]
     Indication: RENAL CELL CARCINOMA
     Dosage: 800MG QD ORALLY
     Route: 048
     Dates: start: 20101001, end: 20101207
  2. LEVOTHYROXINE SODIUM [Concomitant]
  3. XANAX [Concomitant]

REACTIONS (1)
  - POSTOPERATIVE WOUND INFECTION [None]
